FAERS Safety Report 6054049-6 (Version None)
Quarter: 2009Q1

REPORT INFORMATION
  Report Type: 
  Country: None (occurrence: None)
  Receive Date: 20090127
  Receipt Date: 20090120
  Transmission Date: 20090719
  Serious: Yes (Other)
  Sender: FDA-Public Use
  Company Number: DE-ASTRAZENECA-2009AC00398

PATIENT
  Age: 32 Year
  Sex: Male
  Weight: 103 kg

DRUGS (16)
  1. QUETIAPINE FUMARATE [Suspect]
     Indication: ACUTE PSYCHOSIS
     Route: 048
  2. QUETIAPINE FUMARATE [Interacting]
     Dosage: INCREASED WITHIN 10 DAYS FROM 50MG TO 700 MG PER DAY
     Route: 048
  3. QUETIAPINE FUMARATE [Interacting]
     Dosage: 300 MG IN THE MORNING + 400 MG IN THE EVENING
     Route: 048
  4. CLARITHROMYCIN [Interacting]
     Indication: LOWER RESPIRATORY TRACT INFECTION
     Dosage: IN THE EVENING
     Route: 048
  5. CLARITHROMYCIN [Interacting]
     Indication: PYREXIA
     Dosage: IN THE EVENING
     Route: 048
  6. CLARITHROMYCIN [Interacting]
     Dosage: IN THE MORNING
     Route: 048
  7. CLARITHROMYCIN [Interacting]
     Dosage: IN THE MORNING
     Route: 048
  8. SULTAMICILLIN [Concomitant]
     Indication: LOWER RESPIRATORY TRACT INFECTION
     Dosage: IN THE EVENING
     Route: 048
  9. SULTAMICILLIN [Concomitant]
     Indication: PYREXIA
     Dosage: IN THE EVENING
     Route: 048
  10. SULTAMICILLIN [Concomitant]
     Dosage: IN THE MORNING
     Route: 048
  11. SULTAMICILLIN [Concomitant]
     Dosage: IN THE MORNING
     Route: 048
  12. VALPROIC ACID [Concomitant]
  13. S-OMEPRAZOLE [Concomitant]
  14. METFORMIN HCL [Concomitant]
  15. GLIBENCLAMIDE [Concomitant]
  16. EZETIMIBE [Concomitant]

REACTIONS (4)
  - ANTIPSYCHOTIC DRUG LEVEL INCREASED [None]
  - DEPRESSED LEVEL OF CONSCIOUSNESS [None]
  - DRUG INTERACTION [None]
  - RESPIRATORY DEPRESSION [None]
